FAERS Safety Report 9236326 (Version 1)
Quarter: 2013Q2

REPORT INFORMATION
  Report Type: Spontaneous
  Country: US (occurrence: US)
  Receive Date: 20130417
  Receipt Date: 20130417
  Transmission Date: 20140414
  Serious: Yes (Hospitalization, Other)
  Sender: FDA-Public Use
  Company Number: US-BAXTER-2013BAX010964

PATIENT
  Age: 49 Year
  Sex: Female

DRUGS (1)
  1. DIANEAL LOW CALCIUM [Suspect]
     Indication: PERITONEAL DIALYSIS
     Route: 033
     Dates: start: 20111026

REACTIONS (4)
  - Chest pain [Recovering/Resolving]
  - Systemic lupus erythematosus [Recovering/Resolving]
  - Upper respiratory tract infection [Recovered/Resolved]
  - Ear pain [Recovered/Resolved]
